FAERS Safety Report 9953841 (Version 1)
Quarter: 2014Q1

REPORT INFORMATION
  Report Type: Spontaneous
  Country: BR (occurrence: BR)
  Receive Date: 20140304
  Receipt Date: 20140304
  Transmission Date: 20141002
  Serious: Yes (Hospitalization, Other)
  Sender: FDA-Public Use
  Company Number: BR-BRISTOL-MYERS SQUIBB COMPANY-20318796

PATIENT
  Age: 74 Year
  Sex: Female

DRUGS (3)
  1. ELIQUIS [Suspect]
     Indication: THROMBOSIS PROPHYLAXIS
     Route: 048
     Dates: start: 20131218
  2. LOSARTAN POTASSIUM [Concomitant]
  3. ANCORON [Concomitant]

REACTIONS (6)
  - Arrhythmia [Recovered/Resolved]
  - Insomnia [Recovered/Resolved]
  - Nasal dryness [Recovered/Resolved]
  - Irritability [Recovered/Resolved]
  - Dry mouth [Recovered/Resolved]
  - Dry eye [Recovered/Resolved]
